FAERS Safety Report 9632048 (Version 2)
Quarter: 2013Q4

REPORT INFORMATION
  Report Type: Report from Study
  Country: US (occurrence: US)
  Receive Date: 20131018
  Receipt Date: 20131018
  Transmission Date: 20140711
  Serious: Yes (Congenital Anomaly)
  Sender: FDA-Public Use
  Company Number: US-ABBVIE-08P-163-0485182-00

PATIENT
  Sex: 0
  Weight: 3.63 kg

DRUGS (3)
  1. KALETRA TABLETS [Suspect]
     Indication: MATERNAL EXPOSURE TIMING UNSPECIFIED
     Route: 064
  2. KALETRA TABLETS [Suspect]
     Route: 064
  3. COMBIVIR [Suspect]
     Indication: MATERNAL EXPOSURE TIMING UNSPECIFIED
     Route: 064

REACTIONS (2)
  - Congenital cyst [Unknown]
  - Foetal exposure during pregnancy [Unknown]
